FAERS Safety Report 26034305 (Version 1)
Quarter: 2025Q4

REPORT INFORMATION
  Report Type: Spontaneous
  Country: GB (occurrence: GB)
  Receive Date: 20251112
  Receipt Date: 20251112
  Transmission Date: 20260117
  Serious: Yes (Other)
  Sender: RANBAXY
  Company Number: GB-MHRA-TPP8651936C107326YC1761311794557

PATIENT
  Age: 23 Year
  Sex: Male
  Weight: 87 kg

DRUGS (3)
  1. CODEINE [Suspect]
     Active Substance: CODEINE
     Indication: Ill-defined disorder
     Dosage: TAKE ONE TO TWO TABLETS 4 TIMES/DAY
     Route: 065
     Dates: start: 20250908, end: 20251023
  2. MICONAZOLE [Concomitant]
     Active Substance: MICONAZOLE
     Indication: Ill-defined disorder
     Dosage: APPLY TWICE DAILY
     Route: 065
     Dates: start: 20250908, end: 20250922
  3. SERTRALINE [Concomitant]
     Active Substance: SERTRALINE HYDROCHLORIDE
     Indication: Ill-defined disorder
     Dosage: 1 DOSAGE FORM, DAILY
     Route: 065
     Dates: start: 20250408

REACTIONS (2)
  - Chest discomfort [Recovered/Resolved]
  - Dyspnoea [Unknown]

NARRATIVE: CASE EVENT DATE: 20251023
